FAERS Safety Report 4355980-X (Version None)
Quarter: 2004Q2

REPORT INFORMATION
  Report Type: 
  Country: None (occurrence: None)
  Receive Date: 20040507
  Receipt Date: 20040507
  Transmission Date: 20050107
  Serious: Yes (Hospitalization)
  Sender: FDA-Public Use
  Company Number: None

PATIENT
  Age: 56 Year
  Sex: Male
  Weight: 108 kg

DRUGS (1)
  1. WARFARIN SODIUM [Suspect]
     Indication: DEEP VEIN THROMBOSIS
     Dosage: 12 MG ORAL DAILY
     Route: 048

REACTIONS (3)
  - ABNORMAL BEHAVIOUR [None]
  - SOMNOLENCE [None]
  - SUICIDE ATTEMPT [None]
